FAERS Safety Report 8161435-7 (Version None)
Quarter: 2012Q1

REPORT INFORMATION
  Report Type: 
  Country: None (occurrence: None)
  Receive Date: 20120224
  Receipt Date: 20120217
  Transmission Date: 20120608
  Serious: Yes (Hospitalization, Other)
  Sender: FDA-Public Use
  Company Number: US-BAYER-2010-002820

PATIENT
  Age: 25 Year
  Sex: Female
  Weight: 119.27 kg

DRUGS (15)
  1. ZOLOFT [Concomitant]
     Indication: DEPRESSION
     Dosage: UNK
     Dates: start: 20060101, end: 20100101
  2. ADVAIR DISKUS 100/50 [Concomitant]
  3. GABAPENTIN [Concomitant]
  4. HYDROCODONE BITARTRATE AND ACETAMINOPHEN [Concomitant]
  5. DROSPIRENONE AND ETHINYL ESTRADIOL [Suspect]
     Indication: PRODUCT USED FOR UNKNOWN INDICATION
     Dosage: UNK
     Dates: start: 20050101, end: 20091201
  6. ANTIBIOTICS [Concomitant]
  7. YASMIN [Suspect]
     Indication: POLYCYSTIC OVARIES
     Dosage: UNK
     Dates: start: 20050101, end: 20090101
  8. ALLEGRA-D [FEXOFENADINE HYDROCHLORIDE,PSEUDOEPHEDRINE HYDROCHLORID [Concomitant]
  9. ALBUTEROL [Concomitant]
  10. DARVOCET [Concomitant]
     Indication: FIBROMYALGIA
     Dosage: UNK
     Dates: start: 20070101, end: 20110101
  11. DILANTIN [Concomitant]
     Dosage: UNK
     Dates: start: 20070101
  12. SINGULAIR [Concomitant]
     Indication: ASTHMA
     Dosage: UNK
     Dates: start: 20060101
  13. PREDNISONE [Concomitant]
     Dosage: 20 MG, UNK
  14. ZYFLO [Concomitant]
  15. LOESTRIN 1.5/30 [Concomitant]

REACTIONS (5)
  - DEEP VEIN THROMBOSIS [None]
  - GALLBLADDER DISORDER [None]
  - CHOLECYSTITIS CHRONIC [None]
  - INJURY [None]
  - GALLBLADDER CHOLESTEROLOSIS [None]
